FAERS Safety Report 23649438 (Version 1)
Quarter: 2024Q1

REPORT INFORMATION
  Report Type: Spontaneous
  Country: FR (occurrence: FR)
  Receive Date: 20240319
  Receipt Date: 20240319
  Transmission Date: 20240410
  Serious: Yes (Other)
  Sender: FDA-Public Use
  Company Number: None

PATIENT
  Age: 63 Year
  Sex: Female

DRUGS (4)
  1. KEYTRUDA [Suspect]
     Active Substance: PEMBROLIZUMAB
     Indication: Large cell lung cancer
     Dosage: NO, KNOWN
     Route: 042
     Dates: start: 202311, end: 202312
  2. CARBOPLATIN [Suspect]
     Active Substance: CARBOPLATIN
     Indication: Large cell lung cancer
     Dosage: NO, KNOWN
     Route: 042
     Dates: start: 202312, end: 202312
  3. PACLITAXEL [Suspect]
     Active Substance: PACLITAXEL
     Indication: Large cell lung cancer
     Dosage: NO, KNOWN
     Route: 042
     Dates: start: 202312, end: 202312
  4. METOPROLOL TARTRATE [Suspect]
     Active Substance: METOPROLOL TARTRATE
     Indication: Atrial fibrillation
     Dosage: 150 MILLIGRAM, QD
     Route: 048

REACTIONS (2)
  - Neuropathy peripheral [Not Recovered/Not Resolved]
  - Raynaud^s phenomenon [Not Recovered/Not Resolved]

NARRATIVE: CASE EVENT DATE: 20240101
